FAERS Safety Report 6523888-7 (Version None)
Quarter: 2009Q4

REPORT INFORMATION
  Report Type: 
  Country: None (occurrence: None)
  Receive Date: 20091230
  Receipt Date: 20091230
  Transmission Date: 20100525
  Serious: Yes (Hospitalization)
  Sender: FDA-Public Use
  Company Number: None

PATIENT
  Sex: Male
  Weight: 50.4 kg

DRUGS (8)
  1. ASPIRIN [Suspect]
     Indication: CORONARY ARTERY DISEASE
     Dosage: 81MG PO DAILY
     Route: 048
  2. CLOPIDOGREL [Suspect]
     Indication: STENT PLACEMENT
     Dosage: 75MG PO DAILY
     Route: 048
  3. DONEPEZIL HCL [Concomitant]
  4. DOCUSATE SODIUM [Concomitant]
  5. ESCITALOPRAM [Concomitant]
  6. METOPROLOL TARTRATE [Concomitant]
  7. SENNA [Concomitant]
  8. SIMVASTATIN [Concomitant]

REACTIONS (5)
  - ASTHENIA [None]
  - GASTRIC HAEMORRHAGE [None]
  - HAEMOGLOBIN DECREASED [None]
  - PNEUMONIA ASPIRATION [None]
  - SYNCOPE [None]
